FAERS Safety Report 8529396 (Version 3)
Quarter: 2012Q4

REPORT INFORMATION
  Report Type: 
  Country: US (occurrence: US)
  Receive Date: 20120425
  Receipt Date: 20121112
  Transmission Date: 20130627
  Serious: Yes (Other)
  Sender: FDA-Public Use
  Company Number: US-ASTRAZENECA-2012SE25064

PATIENT
  Age: 62 Year
  Sex: Female

DRUGS (6)
  1. SYMBICORT [Suspect]
     Dosage: 80/4.5 MCG DAILY
     Route: 055
  2. NEXIUM [Suspect]
     Route: 048
  3. CRESTOR [Suspect]
     Route: 048
  4. STEROID [Suspect]
     Route: 065
  5. ATENOLOL [Concomitant]
  6. VERAPAMIL [Concomitant]

REACTIONS (5)
  - Blindness [Unknown]
  - Cataract [Unknown]
  - Blindness unilateral [Unknown]
  - Vision blurred [Unknown]
  - Headache [Unknown]
